FAERS Safety Report 4889756-1 (Version None)
Quarter: 2006Q1

REPORT INFORMATION
  Report Type: 
  Country: None (occurrence: None)
  Receive Date: 20060124
  Receipt Date: 20060112
  Transmission Date: 20060701
  Serious: Yes (Death, Other)
  Sender: FDA-Public Use
  Company Number: CA-MERCK-0601USA01545

PATIENT
  Age: 23 Year
  Sex: Male

DRUGS (5)
  1. STROMECTOL [Suspect]
     Route: 048
  2. ALBENDAZOLE [Concomitant]
     Route: 065
  3. IVOMEC [Suspect]
     Route: 058
  4. VANCOMYCIN [Concomitant]
     Route: 065
  5. MEROPENEM [Concomitant]
     Route: 065

REACTIONS (6)
  - COMA [None]
  - HYPOTENSION [None]
  - HYPOXIA [None]
  - PNEUMONIA ASPIRATION [None]
  - PYREXIA [None]
  - SOMNOLENCE [None]
